FAERS Safety Report 12278357 (Version 1)
Quarter: 2016Q2

REPORT INFORMATION
  Report Type: Spontaneous
  Country: PH (occurrence: PH)
  Receive Date: 20160418
  Receipt Date: 20160418
  Transmission Date: 20160815
  Serious: Yes (Hospitalization)
  Sender: FDA-Public Use
  Company Number: PH-PFIZER INC-2016160836

PATIENT
  Age: 68 Year
  Sex: Female

DRUGS (14)
  1. AMLODIPINE [Concomitant]
     Active Substance: AMLODIPINE BESYLATE
     Indication: HYPERTENSION
  2. LYRICA [Suspect]
     Active Substance: PREGABALIN
     Indication: PAIN
     Dosage: 50 MG, 1X/DAY
     Dates: start: 201601
  3. SIMVASTATIN. [Concomitant]
     Active Substance: SIMVASTATIN
     Dosage: 20 MG, EVERY OTHER DAY
  4. AMLODIPINE BESYLATE. [Concomitant]
     Active Substance: AMLODIPINE BESYLATE
     Dosage: 5 MG, UNK
  5. AMACET [Concomitant]
  6. LYRICA [Suspect]
     Active Substance: PREGABALIN
     Indication: HEADACHE
  7. BACLOFEN. [Concomitant]
     Active Substance: BACLOFEN
     Dosage: 10 MG, UNK
  8. OSTEOGUARD /01220301/ [Concomitant]
  9. COLLAGEN /07224901/ [Concomitant]
  10. LYRICA [Suspect]
     Active Substance: PREGABALIN
     Indication: PARAESTHESIA
     Dosage: 75 MG, 1X/DAY
     Dates: end: 20160207
  11. LYRICA [Suspect]
     Active Substance: PREGABALIN
     Indication: TOOTHACHE
  12. CARVEDILOL. [Concomitant]
     Active Substance: CARVEDILOL
     Indication: CARDIAC DISORDER
  13. QUALIPRAZOLE [Concomitant]
     Dosage: 40 MG, UNK
  14. PLASIL /00041901/ [Concomitant]
     Active Substance: METOCLOPRAMIDE
     Dosage: 10 MG, UNK

REACTIONS (5)
  - Vomiting [Unknown]
  - Hypersensitivity [Recovered/Resolved]
  - Dizziness [Unknown]
  - Drug ineffective [Recovered/Resolved]
  - Sinus headache [Recovered/Resolved]

NARRATIVE: CASE EVENT DATE: 201601
